FAERS Safety Report 8227842-9 (Version None)
Quarter: 2012Q1

REPORT INFORMATION
  Report Type: 
  Country: None (occurrence: None)
  Receive Date: 20120322
  Receipt Date: 20120308
  Transmission Date: 20120608
  Serious: Yes (Death, Hospitalization)
  Sender: FDA-Public Use
  Company Number: JP-ROCHE-668907

PATIENT
  Age: 8 Year
  Sex: Male

DRUGS (5)
  1. MABTHERA [Suspect]
     Indication: LIVER TRANSPLANT
     Route: 042
     Dates: start: 20090902, end: 20090902
  2. BACTRIM [Concomitant]
     Indication: PROPHYLAXIS
  3. ONON [Concomitant]
     Indication: PROPHYLAXIS
     Route: 048
  4. LANSOPRAZOLE [Concomitant]
     Indication: GASTRIC ULCER
     Route: 048
  5. MONILAC [Concomitant]
     Indication: HYPERAMMONAEMIA
     Route: 048

REACTIONS (1)
  - RESPIRATORY DISORDER [None]
